FAERS Safety Report 4341968-1 (Version None)
Quarter: 2004Q2

REPORT INFORMATION
  Report Type: 
  Country: None (occurrence: None)
  Receive Date: 20040415
  Receipt Date: 20040325
  Transmission Date: 20050107
  Serious: Yes (Other)
  Sender: FDA-Public Use
  Company Number: US_040310562

PATIENT
  Age: 83 Year
  Sex: Male
  Weight: 59 kg

DRUGS (2)
  1. FORTEO [Suspect]
     Indication: OSTEOPOROSIS
     Dosage: 20 UG/1 DAY
     Dates: start: 20030108
  2. LAXATIVE [Concomitant]

REACTIONS (7)
  - DIZZINESS [None]
  - FALL [None]
  - FRACTURED SACRUM [None]
  - HYPERSENSITIVITY [None]
  - LOSS OF CONSCIOUSNESS [None]
  - PHARMACEUTICAL PRODUCT COMPLAINT [None]
  - POSTURE ABNORMAL [None]
